FAERS Safety Report 11658536 (Version 1)
Quarter: 2015Q4

REPORT INFORMATION
  Report Type: Spontaneous
  Country: CN (occurrence: CN)
  Receive Date: 20151026
  Receipt Date: 20151026
  Transmission Date: 20160304
  Serious: Yes (Other)
  Sender: FDA-Public Use
  Company Number: CN-ROCHE-1648452

PATIENT
  Age: 54 Year
  Sex: Female
  Weight: 45 kg

DRUGS (1)
  1. ROCEPHIN [Suspect]
     Active Substance: CEFTRIAXONE SODIUM
     Indication: LUNG INFECTION
     Dosage: 2G DISSOLVED IN 250ML 0.9% SODIUM CHLORIDE INJECTION
     Route: 042
     Dates: start: 20150420, end: 20150420

REACTIONS (7)
  - Dysphoria [Recovering/Resolving]
  - Dizziness [Recovering/Resolving]
  - Affect lability [Recovering/Resolving]
  - Language disorder [Recovering/Resolving]
  - Asthenia [Recovering/Resolving]
  - Headache [Recovering/Resolving]
  - Suicidal ideation [Recovering/Resolving]

NARRATIVE: CASE EVENT DATE: 20150420
